FAERS Safety Report 4308689-2 (Version None)
Quarter: 2004Q1

REPORT INFORMATION
  Report Type: 
  Country: None (occurrence: None)
  Receive Date: 20040226
  Receipt Date: 20040216
  Transmission Date: 20041129
  Serious: Yes (Hospitalization)
  Sender: FDA-Public Use
  Company Number: JP-JNJFOC-20031002056

PATIENT
  Age: 55 Year
  Sex: Female
  Weight: 65 kg

DRUGS (25)
  1. REMICADE [Suspect]
     Indication: RHEUMATOID ARTHRITIS
     Dosage: SEE IMAGE
     Route: 041
     Dates: start: 20030730, end: 20030730
  2. REMICADE [Suspect]
     Indication: RHEUMATOID ARTHRITIS
     Dosage: SEE IMAGE
     Route: 041
     Dates: start: 20030820, end: 20030820
  3. REMICADE [Suspect]
     Indication: RHEUMATOID ARTHRITIS
     Dosage: SEE IMAGE
     Route: 041
     Dates: start: 20030917, end: 20030917
  4. REMICADE [Suspect]
     Indication: RHEUMATOID ARTHRITIS
     Dosage: SEE IMAGE
     Route: 041
     Dates: start: 20031105, end: 20031105
  5. RHEUMATREX [Suspect]
     Indication: RHEUMATOID ARTHRITIS
     Dosage: SEE IMAGE
     Route: 048
     Dates: start: 20010904, end: 20031121
  6. ETIZOLAM (ETIZOLAM) [Concomitant]
  7. TEPRENONE (TEPRENONE) [Concomitant]
  8. MARZULENE S (MARZULENE S) [Concomitant]
  9. TOUGHMAC E (TOUGHMAC E) [Concomitant]
  10. BETAMETHASONE SODIUM PHOSPHATE [Concomitant]
  11. CELESTAMINE (CELESTAMINE) [Concomitant]
  12. FELBINAC (FELBINAC) [Concomitant]
  13. FLUCONAZOLE [Concomitant]
  14. ALENDRONATE SODIUM [Concomitant]
  15. ISONIAZID [Concomitant]
  16. VOLTAREN [Concomitant]
  17. FOLIAMIN (FOLIC ACID) [Concomitant]
  18. PARIET (RABEPRAZOLE SODIUM) [Concomitant]
  19. CLARITHOMYCIN (CLARITHROMYCIN) [Concomitant]
  20. PRIMPERAN TAB [Concomitant]
  21. LENDORM [Concomitant]
  22. AMLODIPINE BESYLATE [Concomitant]
  23. AZULFIDINE [Concomitant]
  24. DEPAS (ETIZOLAM) [Concomitant]
  25. SELBEX (TEPRENONE) [Concomitant]

REACTIONS (27)
  - ALANINE AMINOTRANSFERASE DECREASED [None]
  - ARTHRALGIA [None]
  - BLOOD ALBUMIN DECREASED [None]
  - BLOOD CHOLESTEROL INCREASED [None]
  - BLOOD FIBRINOGEN INCREASED [None]
  - BLOOD LACTATE DEHYDROGENASE DECREASED [None]
  - BLOOD URIC ACID INCREASED [None]
  - C-REACTIVE PROTEIN INCREASED [None]
  - CHILLS [None]
  - CREATINE PHOSPHOKINASE DECREASED [None]
  - CRYPTOGENIC ORGANIZING PNEUMONIA [None]
  - DRUG INEFFECTIVE [None]
  - FATIGUE [None]
  - GLYCOSYLATED HAEMOGLOBIN INCREASED [None]
  - HAEMATOCRIT DECREASED [None]
  - HAEMOGLOBIN DECREASED [None]
  - JOINT SWELLING [None]
  - LYMPHOCYTE PERCENTAGE DECREASED [None]
  - MONOCYTE COUNT INCREASED [None]
  - NAUSEA [None]
  - NEUTROPHIL PERCENTAGE INCREASED [None]
  - PYREXIA [None]
  - RED BLOOD CELL COUNT DECREASED [None]
  - RHEUMATOID FACTOR INCREASED [None]
  - SPUTUM DISCOLOURED [None]
  - STOMATITIS [None]
  - WHITE BLOOD CELL COUNT INCREASED [None]
